FAERS Safety Report 9914527 (Version 1)
Quarter: 2014Q1

REPORT INFORMATION
  Report Type: Spontaneous
  Country: US (occurrence: None)
  Receive Date: 20140218
  Receipt Date: 20140218
  Transmission Date: 20141002
  Serious: Yes (Hospitalization)
  Sender: FDA-Public Use
  Company Number: 2014020117

PATIENT
  Age: 63 Year
  Sex: Female

DRUGS (40)
  1. DEMADEX [Suspect]
     Indication: DIURETIC THERAPY
     Dosage: 40 MG (20 MG, 2 IN 1 D), ORAL
     Route: 048
     Dates: start: 20071115
  2. REVATIO [Suspect]
     Indication: PULMONARY ARTERIAL HYPERTENSION
     Dates: start: 20060209
  3. ZAROXOLYN [Suspect]
     Indication: DIURETIC THERAPY
     Dosage: 2.5 MG, 2 IN  1 WK, ORAL
     Route: 048
     Dates: start: 20060131
  4. ACARBOSE (ACARBOSE) [Concomitant]
  5. PARACETAMOL [Concomitant]
  6. ALLLOPURINOL (ALLOPURINOL) [Concomitant]
  7. BACLOFEN (BACLOFEN) [Concomitant]
  8. CALCIUM WITH MAGNESIUM (CALCIUM, MAGNESIUM) [Concomitant]
  9. CELECOXIB (CELECOXIB) [Concomitant]
  10. CLONAZEPAM (CLONAZEPAM) (CLONAZEPAM) [Concomitant]
  11. CLOPIDOGREL (CLOPIDOGREL) [Concomitant]
  12. CYANOCOBALAMIN (CYANOCOBALAMIN) (CYANOCOBALAMIN) [Concomitant]
  13. CYCLOSPORINE OPHTHALMIC (CICLOSPORIN) [Concomitant]
  14. DICLOFENAC (DICLOFENAC) [Concomitant]
  15. DOMPERIDONE (DOMPERIDONE) [Concomitant]
  16. DOXYCYCLINE (DOXYCYCLINE) [Concomitant]
  17. DULOXETINE (DULOXETINE) (DULOXETINE) [Concomitant]
  18. ESOMEPRAZOLE (ESOMEPRAZOLE) [Concomitant]
  19. CYCLOGESTERIN (ESTOGREN, PROGRESTERONE) [Concomitant]
  20. EZETIMIBE (EZETIMIBE) (TABLET) [Concomitant]
  21. FENOFIBRIC ACID (FENOFIBRATE) [Concomitant]
  22. FENTANYL (FENTANYL) [Concomitant]
  23. FEXOFENADINE (FEXOFENADINE) (FEXOFENADINE) [Concomitant]
  24. HYDROMORPHONE (HYDROMORPHINE) [Concomitant]
  25. INSULIN DETERMIR (INSULIN DETEMIR) [Concomitant]
  26. IPARTROPIUM (IPRATROPIUM (NASAL SPRAY)) [Concomitant]
  27. L-ARGININE (ARGININE) [Concomitant]
  28. LIDOCAINE (LIDOCAINE) [Concomitant]
  29. LIPITOR (ATORVASTATIN CALCIUM) [Concomitant]
  30. LUNESTA [Concomitant]
  31. MODAFINIL(MODAFINIL) [Concomitant]
  32. MULTIVITAMIN (MULTIVITAMINS) [Concomitant]
  33. OMEGA-3 FATTY ACIDS (OMEGA-3 FATTY ACIDS) [Concomitant]
  34. OXYGEN (OXYGEN) [Concomitant]
  35. FORTAGESIC (ACETAMINOPHEN, PENTAZOCINE) [Concomitant]
  36. MACROGOL (POLYETHYLENE GLYCOL, POTASSIUM BICARBONATE, CHLORIDE) [Concomitant]
  37. PROTOPIC (TACROLIUMS) [Concomitant]
  38. SITAGLIPTIN (SITAGLIPTIN) [Concomitant]
  39. SURFAK STOOL SOFTENER [Concomitant]
  40. URSODIOL (RSODEOXYCHOLIC ACID) [Concomitant]

REACTIONS (18)
  - Pulmonary arterial hypertension [None]
  - Condition aggravated [None]
  - Nephrogenic anaemia [None]
  - Neurogenic bladder [None]
  - Type 2 diabetes mellitus [None]
  - Impaired gastric emptying [None]
  - Constipation [None]
  - Abdominal distension [None]
  - Left ventricular dysfunction [None]
  - Diastolic dysfunction [None]
  - Left ventricular hypertrophy [None]
  - Mitral valve incompetence [None]
  - Dilatation ventricular [None]
  - Ejection fraction decreased [None]
  - Gastrooesophageal reflux disease [None]
  - Depression [None]
  - Anxiety [None]
  - Pain [None]
